FAERS Safety Report 17869637 (Version 1)
Quarter: 2020Q2

REPORT INFORMATION
  Report Type: Spontaneous
  Country: FR (occurrence: FR)
  Receive Date: 20200608
  Receipt Date: 20200608
  Transmission Date: 20200714
  Serious: Yes (Other)
  Sender: FDA-Public Use
  Company Number: FR-SA-2020SA144871

PATIENT

DRUGS (5)
  1. URBANYL [Suspect]
     Active Substance: CLOBAZAM
     Indication: SUICIDE ATTEMPT
     Dosage: NOT SPECIFIED
     Route: 048
     Dates: start: 20171016, end: 20171016
  2. IMOVANE [Suspect]
     Active Substance: ZOPICLONE
     Indication: SUICIDE ATTEMPT
     Dosage: 2 DF, TOTAL
     Route: 048
     Dates: start: 20171016, end: 20171016
  3. VALPROATE SODIUM/VALPROIC ACID [Suspect]
     Active Substance: VALPROIC ACID
     Indication: SUICIDE ATTEMPT
     Dosage: NOT SPECIFIED
     Route: 048
     Dates: start: 20171016, end: 20171016
  4. STILNOX [Suspect]
     Active Substance: ZOLPIDEM TARTRATE
     Indication: SUICIDE ATTEMPT
     Dosage: 3 DF, TOTAL
     Route: 048
     Dates: start: 20171016, end: 20171016
  5. OXAZEPAM. [Suspect]
     Active Substance: OXAZEPAM
     Indication: SUICIDE ATTEMPT
     Dosage: 2 DF, TOTAL
     Route: 048
     Dates: start: 20171016, end: 20171016

REACTIONS (2)
  - Hyperkalaemia [Recovered/Resolved]
  - Toxicity to various agents [Recovered/Resolved]

NARRATIVE: CASE EVENT DATE: 20171016
